FAERS Safety Report 8831935 (Version 4)
Quarter: 2012Q4

REPORT INFORMATION
  Report Type: 
  Country: ES (occurrence: ES)
  Receive Date: 20121009
  Receipt Date: 20121221
  Transmission Date: 20130627
  Serious: Yes (Death, Other)
  Sender: FDA-Public Use
  Company Number: ES-PFIZER INC-2012248715

PATIENT
  Age: 72 Year
  Sex: Female

DRUGS (5)
  1. ALDACTONE [Suspect]
     Indication: CARDIAC INSUFFICIENCY
     Dosage: 25 mg, 1x/day
     Route: 048
     Dates: start: 20120426, end: 20120430
  2. ERTAPENEM [Interacting]
     Indication: RESPIRATORY TRACT INFECTION
     Dosage: 500 mg, 1x/day
     Route: 048
     Dates: start: 20120428
  3. SEGURIL [Interacting]
     Indication: CARDIAC INSUFFICIENCY
     Dosage: 20 mg, 3x/day
     Route: 048
     Dates: start: 20120426, end: 20120430
  4. TRANXILIUM [Interacting]
     Indication: INSOMNIA
     Dosage: 5 mg, 1x/day
     Route: 048
     Dates: start: 2009, end: 20120430
  5. HIBOR [Concomitant]
     Indication: PROPHYLAXIS
     Dosage: 2500 IU, 1x/day
     Route: 058
     Dates: start: 20120426

REACTIONS (5)
  - Drug interaction [Fatal]
  - Cardiac arrest [Fatal]
  - Hyperkalaemia [Recovered/Resolved]
  - Hyponatraemia [Recovered/Resolved]
  - Renal failure acute [Unknown]
